FAERS Safety Report 21916033 (Version 1)
Quarter: 2023Q1

REPORT INFORMATION
  Report Type: Report from Study
  Country: CO (occurrence: CO)
  Receive Date: 20230126
  Receipt Date: 20230126
  Transmission Date: 20230417
  Serious: Yes (Death, Hospitalization, Other)
  Sender: FDA-Public Use
  Company Number: CO-ABBVIE-4282888

PATIENT
  Sex: Female

DRUGS (2)
  1. ZEMPLAR [Suspect]
     Active Substance: PARICALCITOL
     Indication: Hyperparathyroidism secondary
     Dosage: FORM STRENGTH: 2 MICROGRAM
     Route: 048
     Dates: start: 20160616, end: 20210122
  2. INSULIN NOS [Suspect]
     Active Substance: INSULIN NOS
     Indication: Diabetes mellitus
     Route: 065
     Dates: start: 2009

REACTIONS (16)
  - Death [Fatal]
  - General physical health deterioration [Not Recovered/Not Resolved]
  - Hypoxia [Not Recovered/Not Resolved]
  - Myocardial infarction [Not Recovered/Not Resolved]
  - Gait disturbance [Not Recovered/Not Resolved]
  - Cardiovascular disorder [Not Recovered/Not Resolved]
  - Loss of consciousness [Not Recovered/Not Resolved]
  - Hypersomnia [Not Recovered/Not Resolved]
  - Brain death [Not Recovered/Not Resolved]
  - Blood disorder [Not Recovered/Not Resolved]
  - Fistula [Not Recovered/Not Resolved]
  - Drug eruption [Not Recovered/Not Resolved]
  - Drug hypersensitivity [Not Recovered/Not Resolved]
  - Incoherent [Not Recovered/Not Resolved]
  - Dialysis related complication [Unknown]
  - Rash [Unknown]

NARRATIVE: CASE EVENT DATE: 20220101
